FAERS Safety Report 6370658-9 (Version None)
Quarter: 2009Q3

REPORT INFORMATION
  Report Type: 
  Country: None (occurrence: None)
  Receive Date: 20090923
  Receipt Date: 20070514
  Transmission Date: 20100115
  Serious: Yes (Other)
  Sender: FDA-Public Use
  Company Number: US-ASTRAZENECA-2006UW26485

PATIENT
  Age: 14395 Day
  Sex: Male
  Weight: 117.9 kg

DRUGS (13)
  1. SEROQUEL [Suspect]
     Indication: PSYCHOTIC DISORDER
     Dosage: 25 MG-300 MG
     Route: 048
     Dates: start: 20010517
  2. SEROQUEL [Suspect]
     Indication: AFFECTIVE DISORDER
     Dosage: 25 MG-300 MG
     Route: 048
     Dates: start: 20010517
  3. SEROQUEL [Suspect]
     Indication: SCHIZOPHRENIA
     Dosage: 25 MG-300 MG
     Route: 048
     Dates: start: 20010517
  4. SEROQUEL [Suspect]
     Dosage: 25-100 MG
     Route: 048
  5. SEROQUEL [Suspect]
     Dosage: 25-100 MG
     Route: 048
  6. SEROQUEL [Suspect]
     Dosage: 25-100 MG
     Route: 048
  7. ABILIFY [Concomitant]
  8. CELEXA [Concomitant]
     Route: 048
     Dates: start: 20010927
  9. WELLBUTRIN [Concomitant]
     Dates: start: 20011018
  10. ACCUPRIL [Concomitant]
     Indication: HYPERTENSION
     Dosage: 10 MG-20 MG
     Dates: start: 20011212
  11. GLUCOVANCE [Concomitant]
     Indication: DIABETES MELLITUS
     Dosage: 25/500 MG
     Dates: start: 20050516
  12. INSULIN HUMAN [Concomitant]
     Indication: DIABETES MELLITUS
     Dosage: 16 UNIT-22 UNIT
     Dates: start: 20050516
  13. ZYPREXA [Concomitant]
     Indication: SCHIZOPHRENIA
     Dates: start: 20010205

REACTIONS (4)
  - DIABETES MELLITUS [None]
  - DIABETES MELLITUS INADEQUATE CONTROL [None]
  - TYPE 1 DIABETES MELLITUS [None]
  - TYPE 2 DIABETES MELLITUS [None]
